FAERS Safety Report 4640307-6 (Version None)
Quarter: 2005Q2

REPORT INFORMATION
  Report Type: 
  Country: None (occurrence: None)
  Receive Date: 20050420
  Receipt Date: 20040713
  Transmission Date: 20051028
  Serious: Yes (Other)
  Sender: FDA-Public Use
  Company Number: US-GLAXOSMITHKLINE-A0518080A

PATIENT
  Sex: Male

DRUGS (11)
  1. ESKALITH [Suspect]
     Dosage: 300MG PER DAY
     Route: 048
  2. LITHIUM CARBONATE [Suspect]
  3. NEURONTIN [Concomitant]
  4. DIOVAN [Concomitant]
  5. HUMALOG [Concomitant]
  6. LANTUS [Concomitant]
  7. TRICOR [Concomitant]
  8. AVANDIA [Concomitant]
  9. LIPITOR [Concomitant]
  10. METOPROLOL TARTRATE [Concomitant]
  11. ASPIRIN [Concomitant]

REACTIONS (3)
  - DYSPEPSIA [None]
  - GOITRE [None]
  - PSORIASIS [None]
